FAERS Safety Report 6419395-2 (Version None)
Quarter: 2009Q4

REPORT INFORMATION
  Report Type: 
  Country: None (occurrence: None)
  Receive Date: 20091013
  Receipt Date: 20090805
  Transmission Date: 20100525
  Serious: Yes (Other)
  Sender: FDA-Public Use
  Company Number: 1000007480

PATIENT
  Age: 75 Year
  Sex: Female

DRUGS (3)
  1. LEXAPRO [Suspect]
     Indication: DEPRESSION
     Dosage: 10 MG (10 MG, 1 IN 1 D), ORAL
     Route: 048
     Dates: start: 20090713, end: 20090713
  2. KADIAN [Suspect]
     Indication: BACK PAIN
     Dosage: 100 MG (100 MG, 1 IN 1 D), ORAL
     Route: 048
     Dates: start: 20090601
  3. LISINOPRIL [Concomitant]

REACTIONS (2)
  - FATIGUE [None]
  - SUICIDAL IDEATION [None]
